FAERS Safety Report 5865910-7 (Version None)
Quarter: 2008Q3

REPORT INFORMATION
  Report Type: 
  Country: None (occurrence: None)
  Receive Date: 20080829
  Receipt Date: 20080819
  Transmission Date: 20090109
  Serious: Yes (Other)
  Sender: FDA-Public Use
  Company Number: US-PFIZER INC-2006097309

PATIENT
  Sex: Female
  Weight: 74.8 kg

DRUGS (12)
  1. CADUET [Suspect]
     Indication: HYPERTENSION
  2. CADUET [Suspect]
     Indication: BLOOD CHOLESTEROL INCREASED
  3. LIPITOR [Suspect]
     Indication: BLOOD CHOLESTEROL
  4. BENADRYL [Concomitant]
     Route: 065
  5. TERAZOSIN HCL [Concomitant]
     Route: 065
  6. DRUG, UNSPECIFIED [Concomitant]
     Route: 065
  7. ROBAXIN [Concomitant]
     Route: 065
  8. KETOPROFEN [Concomitant]
     Route: 065
  9. PROMETRIUM [Concomitant]
     Route: 065
  10. DRUG, UNSPECIFIED [Concomitant]
     Route: 065
  11. CETIRIZINE/PSEUDOEPHEDRINE [Concomitant]
     Route: 065
  12. HYDROCODONE BITARTRATE [Concomitant]

REACTIONS (10)
  - ASTHMA [None]
  - BLOOD CHOLESTEROL INCREASED [None]
  - CHOLELITHIASIS [None]
  - DRUG HYPERSENSITIVITY [None]
  - HYPERTENSION [None]
  - LIPIDS INCREASED [None]
  - LIVER DISORDER [None]
  - OEDEMA [None]
  - RESPIRATORY DISTRESS [None]
  - SUFFOCATION FEELING [None]
